FAERS Safety Report 19275824 (Version 1)
Quarter: 2021Q2

REPORT INFORMATION
  Report Type: Spontaneous
  Country: NL (occurrence: DE)
  Receive Date: 20210519
  Receipt Date: 20210519
  Transmission Date: 20210717
  Serious: Yes (Other)
  Sender: FDA-Public Use
  Company Number: DE-FRESENIUS KABI-FK202104957

PATIENT
  Age: 39 Year
  Sex: Female
  Weight: 65 kg

DRUGS (9)
  1. BENDAMUSTINE HYDROCHLORIDE (MANUFACTURER UNKOWN) [Suspect]
     Active Substance: BENDAMUSTINE HYDROCHLORIDE
     Indication: METASTATIC BRONCHIAL CARCINOMA
     Dosage: UNK
     Route: 065
  2. TOPOTECAN [Suspect]
     Active Substance: TOPOTECAN HYDROCHLORIDE
     Indication: METASTATIC BRONCHIAL CARCINOMA
     Dosage: UNK
     Route: 065
  3. PACLITAXEL (MANUFACTURER UNKNOWN) [Suspect]
     Active Substance: PACLITAXEL
     Indication: METASTATIC BRONCHIAL CARCINOMA
     Dosage: UNK
     Route: 065
  4. ATEZOLIZUMAB. [Suspect]
     Active Substance: ATEZOLIZUMAB
     Indication: METASTATIC BRONCHIAL CARCINOMA
     Dosage: UNK
     Route: 065
  5. IRINOTECAN MONOHYDROCHLORIDE TRIHYDRATE [Concomitant]
     Active Substance: IRINOTECAN HYDROCHLORIDE
     Indication: PRODUCT USED FOR UNKNOWN INDICATION
     Route: 065
  6. GEMCITABINE. [Concomitant]
     Active Substance: GEMCITABINE
     Indication: PRODUCT USED FOR UNKNOWN INDICATION
     Dosage: UNK
     Route: 065
  7. NALDEMEDINE [Concomitant]
     Active Substance: NALDEMEDINE
     Indication: PRODUCT USED FOR UNKNOWN INDICATION
     Dosage: 200 UG, QD
     Route: 065
     Dates: start: 20210225
  8. CARBOPLATIN (MANUFACTURER UNKNOWN) [Suspect]
     Active Substance: CARBOPLATIN
     Indication: METASTATIC BRONCHIAL CARCINOMA
     Dosage: UNK
     Route: 065
  9. ETOPOSIDE. [Suspect]
     Active Substance: ETOPOSIDE
     Indication: METASTATIC BRONCHIAL CARCINOMA
     Dosage: UNK
     Route: 065

REACTIONS (12)
  - Metastases to stomach [Unknown]
  - Malignant neoplasm progression [Unknown]
  - Metastatic bronchial carcinoma [Unknown]
  - Product use in unapproved indication [Unknown]
  - Intestinal metastasis [Unknown]
  - Metastases to pancreas [Unknown]
  - Constipation [Recovering/Resolving]
  - Metastases to lymph nodes [Unknown]
  - Mesenteric vein thrombosis [Unknown]
  - Abdominal pain [Unknown]
  - Metastases to liver [Unknown]
  - Bronchostenosis [Unknown]

NARRATIVE: CASE EVENT DATE: 201909
